FAERS Safety Report 12885118 (Version 1)
Quarter: 2016Q4

REPORT INFORMATION
  Report Type: Report from Study
  Country: BR (occurrence: BR)
  Receive Date: 20161026
  Receipt Date: 20161026
  Transmission Date: 20170207
  Serious: Yes (Disabling)
  Sender: FDA-Public Use
  Company Number: PHHY2016BR146477

PATIENT
  Sex: Male
  Weight: 80 kg

DRUGS (5)
  1. SERTRALINE [Concomitant]
     Active Substance: SERTRALINE HYDROCHLORIDE
     Indication: AFFECT LABILITY
     Dosage: 50 MG, QD
     Route: 048
  2. OMEPRAZOLE. [Concomitant]
     Active Substance: OMEPRAZOLE
     Indication: PRODUCT USED FOR UNKNOWN INDICATION
     Dosage: UNK UNK, QD
     Route: 048
  3. GILENYA [Suspect]
     Active Substance: FINGOLIMOD HYDROCHLORIDE
     Indication: MULTIPLE SCLEROSIS
     Dosage: 0.5 MG, QD
     Route: 048
     Dates: start: 2015
  4. GABAPENTIN. [Concomitant]
     Active Substance: GABAPENTIN
     Indication: MYALGIA
     Dosage: 30 MG, TID
     Route: 048
  5. DOXAZOSINE [Concomitant]
     Active Substance: DOXAZOSIN MESYLATE
     Indication: URINARY INCONTINENCE
     Dosage: 500 MG, QN
     Route: 048

REACTIONS (5)
  - Muscular weakness [Unknown]
  - Memory impairment [Not Recovered/Not Resolved]
  - Hypokinesia [Unknown]
  - Pain [Unknown]
  - Balance disorder [Not Recovered/Not Resolved]
